FAERS Safety Report 7402901-9 (Version None)
Quarter: 2011Q2

REPORT INFORMATION
  Report Type: 
  Country: None (occurrence: None)
  Receive Date: 20110408
  Receipt Date: 20110325
  Transmission Date: 20111010
  Serious: Yes (Hospitalization)
  Sender: FDA-Public Use
  Company Number: CA-JNJFOC-20110312021

PATIENT
  Sex: Male

DRUGS (8)
  1. CODEINE SUL TAB [Concomitant]
     Dosage: 100 MG DAY AND 30 MG AT BED TIME
     Route: 065
  2. CESAMET [Concomitant]
     Dosage: 0.5 MG AM AND 1.0 MG PM
     Route: 065
  3. AMITRIPTYLINE [Concomitant]
     Route: 048
  4. OXYCODONE [Concomitant]
     Route: 065
  5. LYRICA [Concomitant]
     Dosage: AT BED TIME
     Route: 065
  6. REMICADE [Suspect]
     Indication: CROHN'S DISEASE
     Route: 042
  7. IMURAN [Concomitant]
     Route: 048
  8. ZOPICLONE [Concomitant]
     Dosage: AT BED TIME
     Route: 065

REACTIONS (4)
  - DIARRHOEA [None]
  - WEIGHT DECREASED [None]
  - VOMITING [None]
  - INFLUENZA [None]
